FAERS Safety Report 21989112 (Version 3)
Quarter: 2023Q1

REPORT INFORMATION
  Report Type: Report from Study
  Country: US (occurrence: US)
  Receive Date: 20230214
  Receipt Date: 20230219
  Transmission Date: 20230418
  Serious: Yes (Hospitalization)
  Sender: FDA-Public Use
  Company Number: US-ABBVIE-22K-163-4528982-00

PATIENT
  Age: 79 Year
  Sex: Female
  Weight: 55 kg

DRUGS (22)
  1. HUMIRA [Suspect]
     Active Substance: ADALIMUMAB
     Indication: Rheumatoid arthritis
     Dosage: FORM STRENGTH 40 MG
     Route: 058
     Dates: start: 2002, end: 202208
  2. HUMIRA [Suspect]
     Active Substance: ADALIMUMAB
     Route: 058
     Dates: start: 202209
  3. HUMIRA [Suspect]
     Active Substance: ADALIMUMAB
     Route: 058
     Dates: start: 20221112, end: 20221112
  4. HUMIRA [Suspect]
     Active Substance: ADALIMUMAB
     Route: 058
  5. CLARITIN [Concomitant]
     Active Substance: LORATADINE
     Indication: Hypersensitivity
  6. MYRBETRIQ [Concomitant]
     Active Substance: MIRABEGRON
     Indication: Product used for unknown indication
  7. SINGULAIR [Concomitant]
     Active Substance: MONTELUKAST SODIUM
     Indication: Hypersensitivity
  8. ADVAIR HFA [Concomitant]
     Active Substance: FLUTICASONE PROPIONATE\SALMETEROL XINAFOATE
     Indication: Chronic obstructive pulmonary disease
  9. FLUTICASONE PROPIONATE [Concomitant]
     Active Substance: FLUTICASONE PROPIONATE
     Indication: Product used for unknown indication
  10. GENERLAC [Concomitant]
     Active Substance: LACTULOSE
     Indication: Product used for unknown indication
  11. MOBIC [Concomitant]
     Active Substance: MELOXICAM
     Indication: Product used for unknown indication
  12. XANAX [Concomitant]
     Active Substance: ALPRAZOLAM
     Indication: Product used for unknown indication
  13. TRAMADOL HCL [Concomitant]
     Active Substance: TRAMADOL HYDROCHLORIDE
     Indication: Pain
  14. ADVAIR HFA [Concomitant]
     Active Substance: FLUTICASONE PROPIONATE\SALMETEROL XINAFOATE
     Indication: Product used for unknown indication
  15. SPIRIVA [Concomitant]
     Active Substance: TIOTROPIUM BROMIDE MONOHYDRATE
     Indication: Product used for unknown indication
  16. METHOTREXATE [Concomitant]
     Active Substance: METHOTREXATE
     Indication: Product used for unknown indication
  17. TRELEGY ELLIPTA [Concomitant]
     Active Substance: FLUTICASONE FUROATE\UMECLIDINIUM BROMIDE\VILANTEROL TRIFENATATE
     Indication: Chronic obstructive pulmonary disease
  18. ALBUTEROL [Concomitant]
     Active Substance: ALBUTEROL
     Indication: Asthma
     Dosage: AS NEEDED
  19. ALBUTEROL [Concomitant]
     Active Substance: ALBUTEROL
     Indication: Asthma
     Dosage: AS NEEDED
  20. VENTOLIN HFA AER 108 (90 ) [Concomitant]
     Indication: Chronic obstructive pulmonary disease
  21. ADVAIR DISKUS [Concomitant]
     Active Substance: FLUTICASONE PROPIONATE\SALMETEROL XINAFOATE
     Indication: Chronic obstructive pulmonary disease
  22. SERETIDE [Concomitant]
     Active Substance: FLUTICASONE PROPIONATE\SALMETEROL XINAFOATE
     Indication: Chronic obstructive pulmonary disease

REACTIONS (20)
  - Peripheral swelling [Not Recovered/Not Resolved]
  - Liver disorder [Unknown]
  - Cardiac failure congestive [Unknown]
  - Haematocrit increased [Unknown]
  - Hypertension [Unknown]
  - Allergy to plants [Not Recovered/Not Resolved]
  - Weight decreased [Recovered/Resolved]
  - Fatigue [Recovered/Resolved]
  - Blood viscosity increased [Unknown]
  - Respiratory tract infection [Recovered/Resolved]
  - Body height decreased [Not Recovered/Not Resolved]
  - Pain [Not Recovered/Not Resolved]
  - Haemoglobin increased [Unknown]
  - Asthenia [Recovered/Resolved]
  - Spinal deformity [Not Recovered/Not Resolved]
  - Swelling [Not Recovered/Not Resolved]
  - Blood pressure increased [Recovering/Resolving]
  - Joint swelling [Not Recovered/Not Resolved]
  - Ocular hyperaemia [Unknown]
  - Bronchitis [Unknown]

NARRATIVE: CASE EVENT DATE: 20220701
